FAERS Safety Report 6578380-0 (Version None)
Quarter: 2010Q1

REPORT INFORMATION
  Report Type: 
  Country: None (occurrence: None)
  Receive Date: 20100211
  Receipt Date: 20100203
  Transmission Date: 20100710
  Serious: Yes (Other)
  Sender: FDA-Public Use
  Company Number: US-PFIZER INC-2010005547

PATIENT
  Sex: Male
  Weight: 72.574 kg

DRUGS (5)
  1. DEPO-MEDROL [Suspect]
     Indication: BACK PAIN
     Dosage: 80 MG, UNK
     Route: 008
     Dates: start: 20091202, end: 20091208
  2. DEPO-MEDROL [Suspect]
     Indication: ARTHRALGIA
  3. DEPO-MEDROL [Suspect]
     Indication: INTERVERTEBRAL DISC PROTRUSION
  4. DEPO-MEDROL [Suspect]
     Indication: INTERVERTEBRAL DISC DISORDER
  5. MESALAZINE [Concomitant]
     Indication: COLITIS ULCERATIVE
     Dosage: UNK

REACTIONS (6)
  - ABASIA [None]
  - BACK PAIN [None]
  - FLUSHING [None]
  - HEADACHE [None]
  - MUSCLE SPASMS [None]
  - PAIN [None]
